FAERS Safety Report 9953058 (Version 1)
Quarter: 2014Q1

REPORT INFORMATION
  Report Type: Report from Study
  Country: US (occurrence: US)
  Receive Date: 20140304
  Receipt Date: 20140304
  Transmission Date: 20141002
  Serious: No
  Sender: FDA-Public Use
  Company Number: US-ABBVIE-13P-163-1074697-00

PATIENT
  Age: 48 Year
  Sex: Male
  Weight: 94.89 kg

DRUGS (5)
  1. HUMIRA [Suspect]
     Indication: PSORIASIS
     Dates: start: 20130308
  2. LOTREL [Concomitant]
     Indication: HYPERTENSION
  3. METOPROLOL/HCTZ [Concomitant]
     Indication: HYPERTENSION
  4. FENOFIBRATE [Concomitant]
     Indication: BLOOD CHOLESTEROL INCREASED
  5. MULTIVITAMIN [Concomitant]
     Indication: PRODUCT USED FOR UNKNOWN INDICATION

REACTIONS (3)
  - Cough [Not Recovered/Not Resolved]
  - Weight increased [Not Recovered/Not Resolved]
  - Oropharyngeal discomfort [Not Recovered/Not Resolved]
